FAERS Safety Report 7313315-4 (Version None)
Quarter: 2011Q1

REPORT INFORMATION
  Report Type: 
  Country: None (occurrence: None)
  Receive Date: 20110225
  Receipt Date: 20101015
  Transmission Date: 20110831
  Serious: No
  Sender: FDA-Public Use
  Company Number: US-MYLANLABS-2010S1019200

PATIENT
  Age: 54 Year
  Sex: Female

DRUGS (6)
  1. LIPITOR [Concomitant]
  2. CYMBALTA [Concomitant]
  3. OXYCODONE [Concomitant]
     Dosage: 10MG/650MG
  4. NEXIUM [Concomitant]
  5. METFORMIN HCL [Suspect]
     Dates: start: 20100907, end: 20100910
  6. METFORMIN HCL [Suspect]
     Dates: start: 20100907, end: 20100910

REACTIONS (1)
  - DIARRHOEA [None]
